FAERS Safety Report 4497865-4 (Version None)
Quarter: 2004Q4

REPORT INFORMATION
  Report Type: 
  Country: None (occurrence: None)
  Receive Date: 20041110
  Receipt Date: 20041108
  Transmission Date: 20050328
  Serious: Yes (Hospitalization)
  Sender: FDA-Public Use
  Company Number: DE-GLAXOSMITHKLINE-D0045137A

PATIENT
  Age: 53 Year
  Sex: Male
  Weight: 121 kg

DRUGS (19)
  1. QUILONUM RETARD [Suspect]
     Dosage: 2.5TAB PER DAY
     Route: 048
     Dates: start: 19770101
  2. RISPERDAL [Suspect]
     Dosage: 1MG PER DAY
     Route: 048
     Dates: start: 20040611
  3. ERGENYL [Suspect]
     Dosage: 150MG PER DAY
     Route: 048
     Dates: start: 20040628
  4. HALDOL DECANOATE [Concomitant]
     Dosage: 1ML MONTHLY
     Route: 030
     Dates: end: 20040329
  5. PERAZIN [Concomitant]
     Route: 065
  6. BENALAPRIL [Concomitant]
     Dosage: 5MG PER DAY
     Route: 048
     Dates: start: 20040101
  7. DIAZEPAM [Concomitant]
     Dosage: 40MG PER DAY
     Route: 048
     Dates: start: 20040427
  8. THYRONAJOD [Concomitant]
     Dosage: .1MG PER DAY
     Route: 048
     Dates: start: 20040101
  9. KALINOR [Concomitant]
     Dosage: 1TAB PER DAY
     Route: 048
     Dates: start: 20040419
  10. LASIX [Concomitant]
     Dosage: 40MG PER DAY
     Route: 065
     Dates: start: 20040628
  11. HCT [Concomitant]
     Dosage: 25MG PER DAY
     Route: 065
  12. TAXILAN [Concomitant]
     Dosage: 900MG PER DAY
     Route: 065
     Dates: start: 20040408
  13. HALDOL [Concomitant]
     Dosage: 60MG PER DAY
     Route: 065
     Dates: start: 20040408
  14. AKINETON [Concomitant]
     Dosage: 1TAB PER DAY
     Route: 065
     Dates: start: 20040408
  15. GASTROZEPIN [Concomitant]
     Dosage: 75MG PER DAY
     Route: 065
     Dates: start: 20040408
  16. PANTOZOL [Concomitant]
     Dosage: 40MG PER DAY
     Route: 065
  17. CLEXANE [Concomitant]
     Dosage: .4U PER DAY
     Route: 058
  18. ZOLOFT [Concomitant]
     Dosage: 100MG UNKNOWN
     Route: 065
     Dates: start: 20040601
  19. NEUROCIL [Concomitant]
     Route: 065

REACTIONS (10)
  - CONFUSIONAL STATE [None]
  - DEHYDRATION [None]
  - DISORIENTATION [None]
  - EYELID OEDEMA [None]
  - NEPHROPATHY [None]
  - OEDEMA PERIPHERAL [None]
  - RENAL FAILURE [None]
  - SALT INTOXICATION [None]
  - SOMNOLENCE [None]
  - URINARY TRACT INFECTION [None]
